FAERS Safety Report 20151605 (Version 1)
Quarter: 2021Q4

REPORT INFORMATION
  Report Type: Spontaneous
  Country: FR (occurrence: FR)
  Receive Date: 20211206
  Receipt Date: 20211206
  Transmission Date: 20220303
  Serious: Yes (Other)
  Sender: FDA-Public Use
  Company Number: None

PATIENT
  Age: 39 Year
  Sex: Male
  Weight: 79 kg

DRUGS (4)
  1. OXYBUTYNIN [Suspect]
     Active Substance: OXYBUTYNIN
     Indication: Urinary incontinence
     Dosage: 15 MILLIGRAM, QD
     Route: 048
     Dates: start: 20210918, end: 20210921
  2. ACUPAN [Suspect]
     Active Substance: NEFOPAM HYDROCHLORIDE
     Indication: Pain
     Dosage: 80 MILLIGRAM, QD (20 MG 4X/JR)
     Route: 042
     Dates: start: 20210918, end: 20210922
  3. TRAMADOL HYDROCHLORIDE [Suspect]
     Active Substance: TRAMADOL HYDROCHLORIDE
     Indication: Pain
     Dosage: UNK (NON CONNUE)
     Route: 042
     Dates: start: 20210918, end: 20210920
  4. RIVOTRIL [Suspect]
     Active Substance: CLONAZEPAM
     Indication: Contracted bladder
     Dosage: UNK (5 GOUTTES 3X/JR)
     Route: 048
     Dates: start: 20210918, end: 20210922

REACTIONS (1)
  - Symmetrical drug-related intertriginous and flexural exanthema [Recovered/Resolved]

NARRATIVE: CASE EVENT DATE: 20210922
